FAERS Safety Report 6780874-X (Version None)
Quarter: 2010Q2

REPORT INFORMATION
  Report Type: 
  Country: None (occurrence: None)
  Receive Date: 20100615
  Receipt Date: 20100531
  Transmission Date: 20101027
  Serious: Yes (Other)
  Sender: FDA-Public Use
  Company Number: 2010002270

PATIENT
  Age: 62 Year
  Sex: Male

DRUGS (2)
  1. TARCEVA [Suspect]
     Indication: DRUG USE FOR UNKNOWN INDICATION
     Dosage: (100 MG,QD), ORAL
     Route: 048
     Dates: start: 20081101, end: 20100201
  2. GEMCITABINE [Concomitant]

REACTIONS (5)
  - AORTIC ANEURYSM [None]
  - CARCINOID TUMOUR OF THE PANCREAS [None]
  - MALIGNANT NEOPLASM PROGRESSION [None]
  - PAIN [None]
  - RASH [None]
